FAERS Safety Report 9119212 (Version 3)
Quarter: 2013Q2

REPORT INFORMATION
  Report Type: Spontaneous
  Country: US (occurrence: US)
  Receive Date: 20130226
  Receipt Date: 20130408
  Transmission Date: 20140414
  Serious: No
  Sender: FDA-Public Use
  Company Number: PHEH2013US004492

PATIENT
  Sex: Male

DRUGS (15)
  1. TASIGNA [Suspect]
     Dosage: 150 MG, BID
     Route: 048
  2. LISINOPRIL [Concomitant]
  3. TRADJENTA [Concomitant]
  4. ATIVAN [Concomitant]
  5. METFORMIN ER [Concomitant]
  6. METFORMIN [Concomitant]
  7. METOPROLOL SUCCINATE [Concomitant]
  8. ATROPINE [Concomitant]
  9. ASPIRIN [Concomitant]
  10. MOTOFEN [Concomitant]
  11. GLYBURIDE [Concomitant]
  12. PRAVASTATINE [Concomitant]
  13. MULTI-VIT [Concomitant]
  14. MORPHINE [Concomitant]
  15. COMPAZINE [Concomitant]

REACTIONS (1)
  - Wrong technique in drug usage process [Unknown]
